FAERS Safety Report 7942834-2 (Version None)
Quarter: 2011Q4

REPORT INFORMATION
  Report Type: 
  Country: None (occurrence: None)
  Receive Date: 20111122
  Receipt Date: 20110824
  Transmission Date: 20120403
  Serious: Yes (Other)
  Sender: FDA-Public Use
  Company Number: PHHY2011US38973

PATIENT
  Age: 63 Year
  Sex: Female

DRUGS (2)
  1. CORTICOSTEROIDS (NO INGREDIENTS/SUBSTANCES) [Concomitant]
  2. GILENYA [Suspect]
     Dosage: 0.5 MG, QD, ORAL
     Route: 048
     Dates: start: 20110208, end: 20110504

REACTIONS (4)
  - VISION BLURRED [None]
  - VISUAL ACUITY REDUCED [None]
  - MACULAR OEDEMA [None]
  - VISUAL FIELD DEFECT [None]
